FAERS Safety Report 12092581 (Version 1)
Quarter: 2016Q1

REPORT INFORMATION
  Report Type: Spontaneous
  Country: BR (occurrence: BR)
  Receive Date: 20160219
  Receipt Date: 20160219
  Transmission Date: 20160526
  Serious: Yes (Other)
  Sender: FDA-Public Use
  Company Number: BR-ACCORD-037950

PATIENT
  Age: 56 Year
  Sex: Male
  Weight: 51.4 kg

DRUGS (2)
  1. IRINOTECAN HYDROCHLORIDE ACCORD [Suspect]
     Active Substance: IRINOTECAN HYDROCHLORIDE
     Indication: RECTAL CANCER
     Dosage: IRINOTECAN 240 MG/M^2 (340MG) D1.?ALSO RECEIVED 5 CYCLES IN THE PERIOD 06-NOV-2013 TO 02-DEC-2014.
     Route: 042
     Dates: start: 20160112, end: 20160112
  2. XELODA [Concomitant]
     Active Substance: CAPECITABINE
     Indication: RECTAL CANCER
     Dosage: XELODA 2000 MG/M2 (500 MG + 150 MG) 2CP VO 12/12H FOR 14 DAYS.??RECEIVED 05 CYCLE:XELIRI PROTOCOL
     Dates: start: 20151019, end: 20160122

REACTIONS (4)
  - Erythema [Recovered/Resolved]
  - Tremor [Recovered/Resolved]
  - Hypoxia [Recovered/Resolved]
  - Dyspnoea [Recovered/Resolved]

NARRATIVE: CASE EVENT DATE: 20160112
